FAERS Safety Report 8012901-6 (Version None)
Quarter: 2011Q4

REPORT INFORMATION
  Report Type: 
  Country: None (occurrence: None)
  Receive Date: 20111223
  Receipt Date: 20111223
  Transmission Date: 20120403
  Serious: No
  Sender: FDA-Public Use
  Company Number: None

PATIENT
  Age: 81 Year
  Sex: Male
  Weight: 62.8 kg

DRUGS (2)
  1. FORMOTEROL FUMARATE [Suspect]
     Indication: BRONCHITIS CHRONIC
     Dosage: 1 PUFF(S) BID INHALE
     Route: 055
  2. FORMOTEROL FUMARATE [Suspect]
     Indication: PULMONARY FIBROSIS
     Dosage: 1 PUFF(S) BID INHALE
     Route: 055

REACTIONS (2)
  - DEVICE MALFUNCTION [None]
  - CAPSULE PHYSICAL ISSUE [None]
